FAERS Safety Report 7992594-4 (Version None)
Quarter: 2011Q4

REPORT INFORMATION
  Report Type: 
  Country: None (occurrence: None)
  Receive Date: 20111219
  Receipt Date: 20111209
  Transmission Date: 20120403
  Serious: Yes (Hospitalization)
  Sender: FDA-Public Use
  Company Number: US-PFIZER INC-2011302459

PATIENT
  Sex: Male
  Weight: 77.6 kg

DRUGS (3)
  1. CARBOPLATIN [Suspect]
     Indication: HEAD AND NECK CANCER
     Dosage: 502 IU, UNK
     Dates: start: 20110902
  2. FLUOROURACIL [Suspect]
     Indication: HEAD AND NECK CANCER
     Dosage: 1940 IU, UNK
     Dates: start: 20110902
  3. BLINDED THERAPY [Suspect]
     Indication: HEAD AND NECK CANCER
     Dosage: UNK
     Dates: start: 20110902

REACTIONS (1)
  - PNEUMONIA [None]
